FAERS Safety Report 8048591-6 (Version None)
Quarter: 2012Q1

REPORT INFORMATION
  Report Type: 
  Country: None (occurrence: None)
  Receive Date: 20120117
  Receipt Date: 20120113
  Transmission Date: 20120608
  Serious: Yes (Other)
  Sender: FDA-Public Use
  Company Number: US-PFIZER INC-2012010984

PATIENT
  Sex: Female
  Weight: 58.957 kg

DRUGS (7)
  1. CHANTIX [Suspect]
     Dosage: UNK
     Route: 048
     Dates: start: 20110401, end: 20110401
  2. LYRICA [Concomitant]
     Indication: NERVE INJURY
     Dosage: UNK
  3. CHANTIX [Suspect]
     Indication: SMOKING CESSATION THERAPY
     Dosage: 0.5 MG, 1X/DAY
     Route: 048
     Dates: start: 20110401, end: 20110401
  4. ZANAFLEX [Concomitant]
     Indication: NERVE INJURY
     Dosage: UNK
  5. XANAX [Concomitant]
     Indication: PANIC ATTACK
  6. XANAX [Concomitant]
     Indication: ANXIETY
     Dosage: UNK
  7. AMBIEN [Concomitant]
     Indication: SLEEP DISORDER
     Dosage: UNK

REACTIONS (5)
  - THYROID FUNCTION TEST ABNORMAL [None]
  - VITAMIN D DECREASED [None]
  - NAUSEA [None]
  - PHARYNGEAL MASS [None]
  - BLOOD POTASSIUM DECREASED [None]
